FAERS Safety Report 4910347-8 (Version None)
Quarter: 2006Q1

REPORT INFORMATION
  Report Type: 
  Country: None (occurrence: None)
  Receive Date: 20060209
  Receipt Date: 20060127
  Transmission Date: 20060701
  Serious: Yes (Death)
  Sender: FDA-Public Use
  Company Number: L05-USA-03935-33

PATIENT
  Age: 54 Year
  Sex: Female

DRUGS (4)
  1. DILTIAZEM [Suspect]
  2. ZESTRIL [Suspect]
  3. AMITRIPTYLINE HCL [Suspect]
  4. ACETAMINOPHEN AND HYDROCODONE BITARTRATE [Suspect]

REACTIONS (15)
  - BLOOD BICARBONATE DECREASED [None]
  - BLOOD CALCIUM INCREASED [None]
  - BLOOD CREATININE INCREASED [None]
  - BLOOD PH DECREASED [None]
  - COMPLETED SUICIDE [None]
  - CONVULSION [None]
  - GENERAL PHYSICAL HEALTH DETERIORATION [None]
  - HYPOTENSION [None]
  - INTENTIONAL OVERDOSE [None]
  - LOSS OF CONSCIOUSNESS [None]
  - MENTAL STATUS CHANGES [None]
  - MYOCLONUS [None]
  - NO THERAPEUTIC RESPONSE [None]
  - NODAL ARRHYTHMIA [None]
  - SINUS BRADYCARDIA [None]
